FAERS Safety Report 19669336 (Version 3)
Quarter: 2021Q3

REPORT INFORMATION
  Report Type: Spontaneous
  Country: US (occurrence: US)
  Receive Date: 20210806
  Receipt Date: 20210831
  Transmission Date: 20211014
  Serious: No
  Sender: FDA-Public Use
  Company Number: US-ORGANON-O2108USA000490

PATIENT
  Sex: Female

DRUGS (1)
  1. REMERON SOLTAB [Suspect]
     Active Substance: MIRTAZAPINE
     Dosage: 1 DOSAGE FORM PER NIGHT
     Dates: start: 20210803

REACTIONS (2)
  - Incorrect route of product administration [Unknown]
  - No adverse event [Unknown]

NARRATIVE: CASE EVENT DATE: 20210803
